FAERS Safety Report 9433541 (Version 6)
Quarter: 2018Q1

REPORT INFORMATION
  Report Type: Spontaneous
  Country: US (occurrence: US)
  Receive Date: 20130731
  Receipt Date: 20180125
  Transmission Date: 20180509
  Serious: Yes (Hospitalization, Disabling, Other)
  Sender: FDA-Public Use
  Company Number: US-009507513-1307USA013622

PATIENT
  Sex: Female
  Weight: 64.85 kg

DRUGS (16)
  1. FOSAMAX [Suspect]
     Active Substance: ALENDRONATE SODIUM
     Indication: OSTEOPENIA
     Dosage: 70 MG, QW
     Route: 048
     Dates: start: 20010713, end: 2007
  2. RECLAST [Suspect]
     Active Substance: ZOLEDRONIC ACID
     Indication: OSTEOPOROSIS
     Dosage: UNK
     Route: 065
     Dates: start: 201005
  3. ACTONEL [Suspect]
     Active Substance: RISEDRONATE SODIUM
     Indication: OSTEOPENIA
  4. VITAMINS (UNSPECIFIED) [Concomitant]
     Active Substance: VITAMINS
     Indication: PRODUCT USED FOR UNKNOWN INDICATION
     Dosage: UNK
     Route: 065
     Dates: start: 1997
  5. VITAMIN D [Concomitant]
     Active Substance: CHOLECALCIFEROL
     Indication: PRODUCT USED FOR UNKNOWN INDICATION
     Dosage: 2000
     Route: 065
     Dates: start: 1997
  6. RECLAST [Suspect]
     Active Substance: ZOLEDRONIC ACID
     Indication: OSTEOPENIA
  7. FOSAMAX [Suspect]
     Active Substance: ALENDRONATE SODIUM
     Indication: OSTEOPENIA
     Dosage: 40 MG, QW
     Route: 048
     Dates: start: 20000613
  8. CLINDAMYCIN. [Concomitant]
     Active Substance: CLINDAMYCIN
     Indication: DENTAL DISORDER PROPHYLAXIS
     Dosage: UNK
     Route: 065
     Dates: start: 1990
  9. BENZAMYCIN TOPICAL GEL [Concomitant]
     Indication: ACNE
     Dosage: UNK
     Route: 065
     Dates: start: 1987
  10. ACTONEL [Suspect]
     Active Substance: RISEDRONATE SODIUM
     Indication: OSTEOPOROSIS
     Dosage: UNK
     Route: 065
     Dates: start: 2007, end: 2010
  11. CALCIUM (UNSPECIFIED) [Concomitant]
     Active Substance: CALCIUM
     Indication: PRODUCT USED FOR UNKNOWN INDICATION
     Dosage: 1200
     Dates: start: 1997
  12. VALACYCLOVIR HYDROCHLORIDE. [Concomitant]
     Active Substance: VALACYCLOVIR HYDROCHLORIDE
     Indication: HERPES VIRUS INFECTION
     Dosage: UNK
     Route: 065
     Dates: start: 1997
  13. FOSAMAX PLUS D [Suspect]
     Active Substance: ALENDRONATE SODIUM\CHOLECALCIFEROL
     Indication: OSTEOPENIA
     Route: 048
  14. FOSAMAX PLUS D [Suspect]
     Active Substance: ALENDRONATE SODIUM\CHOLECALCIFEROL
     Indication: OSTEOPOROSIS
  15. FOSAMAX [Suspect]
     Active Substance: ALENDRONATE SODIUM
     Indication: OSTEOPOROSIS
  16. FOSAMAX [Suspect]
     Active Substance: ALENDRONATE SODIUM
     Indication: OSTEOPOROSIS

REACTIONS (27)
  - Hypercholesterolaemia [Unknown]
  - Anaemia [Unknown]
  - Hyperlipidaemia [Unknown]
  - Large intestine polyp [Unknown]
  - Breast cancer [Unknown]
  - Multiple fractures [Unknown]
  - Urinary tract infection [Unknown]
  - Femur fracture [Unknown]
  - Hip fracture [Unknown]
  - Tachycardia [Recovered/Resolved]
  - Candida infection [Unknown]
  - Anaemia [Unknown]
  - Pollakiuria [Unknown]
  - Cataract operation [Unknown]
  - Allergy to metals [Unknown]
  - Spinal osteoarthritis [Not Recovered/Not Resolved]
  - Breast cancer [Unknown]
  - Osteoporosis [Unknown]
  - Peripheral swelling [Unknown]
  - Low turnover osteopathy [Not Recovered/Not Resolved]
  - Insomnia [Unknown]
  - Cystoscopy [Unknown]
  - Osteolysis [Unknown]
  - Fracture [Unknown]
  - Genital herpes [Unknown]
  - Osteoarthritis [Unknown]
  - Gastrooesophageal reflux disease [Unknown]

NARRATIVE: CASE EVENT DATE: 2003
